FAERS Safety Report 8848964 (Version 1)
Quarter: 2012Q4

REPORT INFORMATION
  Report Type: Spontaneous
  Country: US (occurrence: None)
  Receive Date: 20121016
  Receipt Date: 20121016
  Transmission Date: 20130627
  Serious: Yes (Hospitalization, Other)
  Sender: FDA-Public Use
  Company Number: VAL_00918_2012

PATIENT
  Age: 38 Year
  Sex: Female

DRUGS (1)
  1. PARLODEL [Suspect]
     Indication: LACTATION SUPPRESSED
     Dates: start: 1992

REACTIONS (5)
  - Blood pressure systolic increased [None]
  - Carotid artery stenosis [None]
  - Haemorrhagic infarction [None]
  - Nervous system disorder [None]
  - Cerebrovascular accident [None]
